FAERS Safety Report 21546163 (Version 4)
Quarter: 2022Q4

REPORT INFORMATION
  Report Type: Report from Study
  Country: ES (occurrence: ES)
  Receive Date: 20221103
  Receipt Date: 20221121
  Transmission Date: 20230113
  Serious: Yes (Other)
  Sender: FDA-Public Use
  Company Number: ES-ABBVIE-4176016

PATIENT
  Sex: Female

DRUGS (5)
  1. CARBIDOPA\LEVODOPA [Suspect]
     Active Substance: CARBIDOPA\LEVODOPA
     Indication: Parkinson^s disease
     Route: 050
     Dates: start: 20221020, end: 202210
  2. CARBIDOPA\LEVODOPA [Suspect]
     Active Substance: CARBIDOPA\LEVODOPA
     Dosage: DOSE CHANGED TO 1.8 ML/H
     Route: 050
     Dates: start: 202210, end: 202210
  3. CARBIDOPA\LEVODOPA [Suspect]
     Active Substance: CARBIDOPA\LEVODOPA
     Dosage: DOSE CHANGED TO 1.8 ML/H, THERAPY START DATE WAS OCT 2022.
     Route: 050
     Dates: start: 202210
  4. SINEMET [Concomitant]
     Active Substance: CARBIDOPA\LEVODOPA
     Indication: Product used for unknown indication
     Dosage: RETARD, 1 IN THE EVENING
     Route: 048
  5. CLOXACILLIN [Concomitant]
     Active Substance: CLOXACILLIN
     Indication: Stoma site infection
     Route: 048
     Dates: start: 20221031

REACTIONS (15)
  - Limb discomfort [Not Recovered/Not Resolved]
  - General physical health deterioration [Unknown]
  - Stoma site pain [Recovering/Resolving]
  - Device dislocation [Unknown]
  - Abdominal discomfort [Recovering/Resolving]
  - Gait disturbance [Not Recovered/Not Resolved]
  - Extra dose administered [Unknown]
  - Stoma site infection [Not Recovered/Not Resolved]
  - Freezing phenomenon [Unknown]
  - Abdominal pain upper [Recovering/Resolving]
  - Urinary incontinence [Unknown]
  - Flatulence [Unknown]
  - Mobility decreased [Unknown]
  - Obstruction [Unknown]
  - Urinary tract infection [Unknown]

NARRATIVE: CASE EVENT DATE: 20220101
